FAERS Safety Report 7070746-8 (Version None)
Quarter: 2010Q4

REPORT INFORMATION
  Report Type: 
  Country: None (occurrence: None)
  Receive Date: 20101029
  Receipt Date: 20101021
  Transmission Date: 20110411
  Serious: Yes (Hospitalization, Other)
  Sender: FDA-Public Use
  Company Number: JP-BAYER-201012178BYL

PATIENT
  Age: 46 Year
  Sex: Female
  Weight: 68 kg

DRUGS (2)
  1. MIRENA [Suspect]
     Indication: CONTRACEPTION
     Dosage: UNIT DOSE: 52 MG
     Route: 015
     Dates: start: 20080408, end: 20080916
  2. TOMIRON [Concomitant]
     Indication: INFECTION PROPHYLAXIS
     Dosage: UNIT DOSE: 100 MG
     Route: 048
     Dates: start: 20080408, end: 20080409

REACTIONS (4)
  - CEREBELLAR INFARCTION [None]
  - MENORRHAGIA [None]
  - VAGINAL INFECTION [None]
  - VULVITIS [None]
